FAERS Safety Report 5715489-5 (Version None)
Quarter: 2008Q2

REPORT INFORMATION
  Report Type: 
  Country: None (occurrence: None)
  Receive Date: 20080422
  Receipt Date: 20080407
  Transmission Date: 20081010
  Serious: Yes (Hospitalization)
  Sender: FDA-Public Use
  Company Number: 2008PV034033

PATIENT
  Age: 64 Year
  Sex: Female

DRUGS (11)
  1. SYMLIN [Suspect]
     Indication: TYPE 2 DIABETES MELLITUS
     Dosage: 120 MCG; TID; SC, 60 MCG; TID; SC
     Route: 058
     Dates: start: 20070919, end: 20071031
  2. SYMLIN [Suspect]
     Indication: TYPE 2 DIABETES MELLITUS
     Dosage: 120 MCG; TID; SC, 60 MCG; TID; SC
     Route: 058
     Dates: start: 20071031
  3. NOVOLOG [Concomitant]
  4. LANTUS [Concomitant]
  5. HUMALOG [Concomitant]
  6. DILTIAZEM [Concomitant]
  7. ATACAND [Concomitant]
  8. TRICOR [Concomitant]
  9. CYMBALTA [Concomitant]
  10. RANITIDINE [Concomitant]
  11. MIRAPEX [Concomitant]

REACTIONS (4)
  - ACUTE MYOCARDIAL INFARCTION [None]
  - CORONARY ARTERY OCCLUSION [None]
  - DYSGEUSIA [None]
  - NAUSEA [None]
